FAERS Safety Report 6829396-8 (Version None)
Quarter: 2010Q3

REPORT INFORMATION
  Report Type: 
  Country: None (occurrence: None)
  Receive Date: 20100709
  Receipt Date: 20070505
  Transmission Date: 20110219
  Serious: No
  Sender: FDA-Public Use
  Company Number: US-PFIZER INC-2007017541

PATIENT
  Sex: Male

DRUGS (7)
  1. CHANTIX [Suspect]
     Indication: SMOKING CESSATION THERAPY
     Route: 048
     Dates: start: 20070202
  2. VALSARTAN [Concomitant]
  3. NORVASC [Concomitant]
  4. METOPROLOL [Concomitant]
  5. WARFARIN [Concomitant]
     Indication: ATRIAL FIBRILLATION
  6. LOVASTATIN [Concomitant]
  7. GLYBURIDE [Concomitant]

REACTIONS (1)
  - PRURITUS [None]
